FAERS Safety Report 23987017 (Version 1)
Quarter: 2024Q2

REPORT INFORMATION
  Report Type: Report from Study
  Country: US (occurrence: US)
  Receive Date: 20240618
  Receipt Date: 20240618
  Transmission Date: 20240716
  Serious: Yes (Other)
  Sender: FDA-Public Use
  Company Number: US-Pharmaand-2024000358

PATIENT
  Sex: Female

DRUGS (1)
  1. RUBRACA [Suspect]
     Active Substance: RUCAPARIB CAMSYLATE
     Indication: Ovarian cancer
     Dosage: 600 MG TWICE DAILY
     Route: 048
     Dates: start: 202403, end: 20240429

REACTIONS (11)
  - Neuropathy peripheral [Unknown]
  - Renal disorder [Unknown]
  - Visual impairment [Unknown]
  - Memory impairment [Unknown]
  - Blood triglycerides increased [Unknown]
  - Full blood count abnormal [Unknown]
  - Asthenia [Unknown]
  - Pruritus [Unknown]
  - Fatigue [Unknown]
  - Constipation [Unknown]
  - Diarrhoea [Unknown]
